FAERS Safety Report 12766283 (Version 1)
Quarter: 2016Q3

REPORT INFORMATION
  Report Type: Spontaneous
  Country: US (occurrence: US)
  Receive Date: 20160921
  Receipt Date: 20160921
  Transmission Date: 20161109
  Serious: Yes (Other)
  Sender: FDA-Public Use
  Company Number: None

PATIENT
  Age: 54 Year
  Sex: Female
  Weight: 55.34 kg

DRUGS (1)
  1. POLY BACITRACIN [Suspect]
     Active Substance: BACITRACIN ZINC\POLYMYXIN B SULFATE
     Indication: BURNS SECOND DEGREE
     Dosage: ON THE SKIN
     Dates: start: 20160824, end: 20160905

REACTIONS (4)
  - Thermal burn [None]
  - Urticaria [None]
  - Condition aggravated [None]
  - Drug hypersensitivity [None]

NARRATIVE: CASE EVENT DATE: 20160824
